FAERS Safety Report 6918598-8 (Version None)
Quarter: 2010Q3

REPORT INFORMATION
  Report Type: 
  Country: None (occurrence: None)
  Receive Date: 20100811
  Receipt Date: 20100804
  Transmission Date: 20110219
  Serious: Yes (Hospitalization)
  Sender: FDA-Public Use
  Company Number: FR-KINGPHARMUSA00001-K201000986

PATIENT
  Age: 91 Year
  Sex: Female

DRUGS (6)
  1. ALTACE [Suspect]
     Indication: ACUTE CORONARY SYNDROME
     Dosage: 1.25 MG, SINGLE
     Route: 048
     Dates: start: 20100516, end: 20100523
  2. BISOPROLOL FUMARATE [Suspect]
     Indication: ACUTE CORONARY SYNDROME
     Dosage: 2.5 MG, SINGLE
     Route: 048
     Dates: start: 20100516, end: 20100525
  3. PLAVIX [Concomitant]
     Dosage: UNK
     Dates: start: 20100516
  4. KARDEGIC [Concomitant]
     Dosage: UNK
     Dates: start: 20100516
  5. ATHYMIL [Concomitant]
     Dosage: UNK
  6. TAHOR [Concomitant]
     Dosage: UNK
     Dates: start: 20100516

REACTIONS (4)
  - ACUTE PRERENAL FAILURE [None]
  - BRADYCARDIA [None]
  - DEHYDRATION [None]
  - HYPOTENSION [None]
